FAERS Safety Report 4917531-8 (Version None)
Quarter: 2006Q1

REPORT INFORMATION
  Report Type: 
  Country: None (occurrence: None)
  Receive Date: 20060221
  Receipt Date: 20050824
  Transmission Date: 20060701
  Serious: Yes (Hospitalization)
  Sender: FDA-Public Use
  Company Number: US-MERCK-0508USA04307

PATIENT
  Age: 47 Year
  Sex: Male
  Weight: 109 kg

DRUGS (5)
  1. VIOXX [Suspect]
     Indication: NECK PAIN
     Route: 048
     Dates: start: 20020101, end: 20040901
  2. VIOXX [Suspect]
     Route: 048
     Dates: start: 20040201
  3. VIOXX [Suspect]
     Indication: ARTHRITIS
     Route: 048
     Dates: start: 20020101, end: 20040901
  4. VIOXX [Suspect]
     Route: 048
     Dates: start: 20040201
  5. ASPIRIN [Concomitant]
     Route: 065

REACTIONS (19)
  - ANAEMIA [None]
  - ANGINA PECTORIS [None]
  - ARTHRALGIA [None]
  - BLOOD CHOLESTEROL INCREASED [None]
  - BLOOD TRIGLYCERIDES INCREASED [None]
  - CARDIAC DISORDER [None]
  - CORONARY ARTERY DISEASE [None]
  - CORONARY ARTERY STENOSIS [None]
  - DEPRESSION [None]
  - DILATATION ATRIAL [None]
  - FATIGUE [None]
  - GASTRIC POLYPS [None]
  - HIATUS HERNIA [None]
  - LOWER GASTROINTESTINAL HAEMORRHAGE [None]
  - MITRAL VALVE INCOMPETENCE [None]
  - MYOCARDIAL INFARCTION [None]
  - TRICUSPID VALVE INCOMPETENCE [None]
  - VENTRICULAR DYSFUNCTION [None]
  - VENTRICULAR HYPERTROPHY [None]
